FAERS Safety Report 7202253-3 (Version None)
Quarter: 2010Q4

REPORT INFORMATION
  Report Type: 
  Country: None (occurrence: None)
  Receive Date: 20101216
  Receipt Date: 20101202
  Transmission Date: 20110411
  Serious: Yes (Other)
  Sender: FDA-Public Use
  Company Number: US-1184295

PATIENT
  Age: 56 Year
  Sex: Female
  Weight: 67.586 kg

DRUGS (1)
  1. MIOSTAT [Suspect]
     Indication: CATARACT OPERATION
     Dosage: INTRAOCULAR
     Route: 031
     Dates: start: 20101118, end: 20101118

REACTIONS (1)
  - ENDOPHTHALMITIS [None]
